FAERS Safety Report 6087912-0 (Version None)
Quarter: 2009Q1

REPORT INFORMATION
  Report Type: 
  Country: None (occurrence: None)
  Receive Date: 20090223
  Receipt Date: 20090216
  Transmission Date: 20090719
  Serious: Yes (Hospitalization, Other)
  Sender: FDA-Public Use
  Company Number: IR-ROXANE LABORATORIES, INC.-2009-RO-00157RO

PATIENT
  Age: 3 Year
  Sex: Female

DRUGS (7)
  1. MERCAPTOPURINE [Suspect]
     Indication: ACUTE LYMPHOCYTIC LEUKAEMIA
  2. METHOTREXATE [Suspect]
     Indication: ACUTE LYMPHOCYTIC LEUKAEMIA
  3. ANTIBIOTIC TREATMENT [Suspect]
     Indication: PYREXIA
  4. ANTIBIOTIC TREATMENT [Suspect]
     Indication: SUBMANDIBULAR MASS
  5. VINCRISTINE [Suspect]
     Indication: HODGKIN'S DISEASE NODULAR SCLEROSIS STAGE I SITE UNSPECIFIED
  6. PREDNISOLONE [Suspect]
     Indication: HODGKIN'S DISEASE NODULAR SCLEROSIS STAGE I SITE UNSPECIFIED
  7. DOXORUBICIN HCL [Suspect]
     Indication: HODGKIN'S DISEASE NODULAR SCLEROSIS STAGE I SITE UNSPECIFIED

REACTIONS (3)
  - FEBRILE NEUTROPENIA [None]
  - HODGKIN'S DISEASE NODULAR SCLEROSIS STAGE I SITE UNSPECIFIED [None]
  - INFECTION PARASITIC [None]
